FAERS Safety Report 10428601 (Version 1)
Quarter: 2014Q3

REPORT INFORMATION
  Report Type: Spontaneous
  Country: JP (occurrence: JP)
  Receive Date: 20140903
  Receipt Date: 20140903
  Transmission Date: 20150326
  Serious: Yes (Other)
  Sender: FDA-Public Use
  Company Number: JP-ABBVIE-14P-087-1277027-00

PATIENT
  Sex: Male
  Weight: 3.14 kg

DRUGS (1)
  1. VALPROIC ACID. [Suspect]
     Active Substance: VALPROIC ACID
     Indication: MATERNAL EXPOSURE TIMING UNSPECIFIED
     Route: 064

REACTIONS (7)
  - Tracheal stenosis [Unknown]
  - Vocal cord disorder [Recovered/Resolved]
  - Foetal anticonvulsant syndrome [Unknown]
  - Laryngeal web [Unknown]
  - Laryngeal haemorrhage [Recovered/Resolved]
  - Foetal exposure during pregnancy [Unknown]
  - Laryngeal oedema [Recovered/Resolved]
